FAERS Safety Report 20798029 (Version 1)
Quarter: 2022Q2

REPORT INFORMATION
  Report Type: Spontaneous
  Country: CA (occurrence: CA)
  Receive Date: 20220506
  Receipt Date: 20220506
  Transmission Date: 20220721
  Serious: Yes (Other)
  Sender: FDA-Public Use
  Company Number: CA-AMERICAN REGENT INC-2022001280

PATIENT
  Age: 29 Year
  Sex: Female

DRUGS (2)
  1. VENOFER [Suspect]
     Active Substance: IRON SUCROSE
     Indication: Iron deficiency
     Dosage: 300 MILLIGRAM DILUTED IN 250 ML NORMAL SALINE
     Route: 042
     Dates: start: 20211214, end: 20211214
  2. VENOFER [Suspect]
     Active Substance: IRON SUCROSE
     Dosage: UNK, FIRST DOSE
     Route: 065

REACTIONS (4)
  - Erythema [Recovered/Resolved]
  - Limb discomfort [Recovered/Resolved]
  - Peripheral swelling [Recovered/Resolved]
  - Incorrect product administration duration [Recovered/Resolved]

NARRATIVE: CASE EVENT DATE: 20211214
